FAERS Safety Report 17343367 (Version 1)
Quarter: 2020Q1

REPORT INFORMATION
  Report Type: Spontaneous
  Country: US (occurrence: US)
  Receive Date: 20200129
  Receipt Date: 20200129
  Transmission Date: 20200409
  Serious: No
  Sender: FDA-Public Use
  Company Number: US-ALLERGAN-1935237US

PATIENT
  Age: 55 Year
  Sex: Female

DRUGS (4)
  1. NATURAL HERBAL THYROID [Concomitant]
  2. VITAMINS NOS [Concomitant]
     Active Substance: VITAMINS
  3. KELP [Concomitant]
     Active Substance: KELP
  4. BOTOX COSMETIC [Suspect]
     Active Substance: ONABOTULINUMTOXINA
     Indication: SKIN WRINKLING
     Dosage: 30 UNITS, SINGLE
     Dates: start: 20181109, end: 20181109

REACTIONS (3)
  - Off label use [Unknown]
  - Pruritus [Unknown]
  - Therapeutic response decreased [Unknown]

NARRATIVE: CASE EVENT DATE: 20181109
